FAERS Safety Report 16456968 (Version 1)
Quarter: 2019Q3

REPORT INFORMATION
  Report Type: Spontaneous
  Country: US (occurrence: US)
  Receive Date: 20190619
  Receipt Date: 20190619
  Transmission Date: 20191004
  Serious: Yes (Life-Threatening)
  Sender: FDA-Public Use
  Company Number: None

PATIENT
  Age: 77 Year
  Sex: Female
  Weight: 54 kg

DRUGS (6)
  1. VITAMIN B12 [Concomitant]
     Active Substance: CYANOCOBALAMIN
  2. MULTI 50+ [Concomitant]
  3. TELMISARTAN TABLETS USP 20 MG [Suspect]
     Active Substance: TELMISARTAN
     Indication: HYPERTENSION
     Dosage: ?          QUANTITY:1 TABLET(S);??
     Route: 048
  4. ASPIRIN. [Concomitant]
     Active Substance: ASPIRIN
  5. VITAMIN D [Concomitant]
     Active Substance: VITAMIN D NOS
  6. OCUVITE [Concomitant]
     Active Substance: VITAMINS

REACTIONS (8)
  - Product physical issue [None]
  - Product packaging issue [None]
  - Drug ineffective [None]
  - Product blister packaging issue [None]
  - Hypoaesthesia [None]
  - Dry mouth [None]
  - Product taste abnormal [None]
  - Blood pressure increased [None]

NARRATIVE: CASE EVENT DATE: 20181001
